FAERS Safety Report 5067478-4 (Version None)
Quarter: 2006Q3

REPORT INFORMATION
  Report Type: 
  Country: None (occurrence: None)
  Receive Date: 20060727
  Receipt Date: 20060719
  Transmission Date: 20061208
  Serious: Yes (Other)
  Sender: FDA-Public Use
  Company Number: 200610481BFR

PATIENT
  Age: 46 Year
  Sex: Female
  Weight: 96 kg

DRUGS (4)
  1. ACARBOSE [Suspect]
     Indication: DIABETES MELLITUS
     Dosage: 50 MG, TOTAL DAILY, ORAL
     Route: 048
     Dates: start: 20060418
  2. ART [DIACEREIN] [Concomitant]
  3. NEURONTIN [Concomitant]
  4. CERAZETTE [Concomitant]

REACTIONS (3)
  - DYSPHAGIA [None]
  - FLATULENCE [None]
  - THROAT TIGHTNESS [None]
